FAERS Safety Report 6634501-2 (Version None)
Quarter: 2010Q1

REPORT INFORMATION
  Report Type: 
  Country: None (occurrence: None)
  Receive Date: 20100311
  Receipt Date: 20100311
  Transmission Date: 20100710
  Serious: Yes (Life-Threatening, Other)
  Sender: FDA-Public Use
  Company Number: None

PATIENT
  Age: 22 Year
  Sex: Male
  Weight: 69.8539 kg

DRUGS (1)
  1. CHERATUSSIN AC SYRP 120 ROMILAR AC. TUSSI-ORGANIDIN NR [Suspect]
     Indication: COUGH
     Dosage: 1 TABLE SPOON 1 EVERY 4- HRS PO
     Route: 048
     Dates: start: 20080306, end: 20080306

REACTIONS (5)
  - CONVULSION [None]
  - FALL [None]
  - FEAR [None]
  - HALLUCINATIONS, MIXED [None]
  - PANIC REACTION [None]
